FAERS Safety Report 5200038-0 (Version None)
Quarter: 2007Q1

REPORT INFORMATION
  Report Type: 
  Country: None (occurrence: None)
  Receive Date: 20070105
  Receipt Date: 20061228
  Transmission Date: 20070707
  Serious: Yes (Other)
  Sender: FDA-Public Use
  Company Number: BE-ELI_LILLY_AND_COMPANY-BE200701000100

PATIENT
  Sex: Male

DRUGS (2)
  1. CIALIS [Suspect]
     Indication: ERECTILE DYSFUNCTION
     Dosage: UNK, UNKNOWN
     Route: 048
  2. INDERAL [Concomitant]
     Indication: CARDIAC DISORDER

REACTIONS (4)
  - EYE OEDEMA [None]
  - EYELID OEDEMA [None]
  - MALAISE [None]
  - VISION BLURRED [None]
